FAERS Safety Report 8385636 (Version 4)
Quarter: 2014Q2

REPORT INFORMATION
  Report Type: Spontaneous
  Country: US (occurrence: US)
  Receive Date: 20120202
  Receipt Date: 20140414
  Transmission Date: 20141212
  Serious: Yes (Hospitalization, Congenital Anomaly, Other)
  Sender: FDA-Public Use
  Company Number: US-PFIZER INC-2012024654

PATIENT
  Sex: Female
  Weight: 2.63 kg

DRUGS (68)
  1. ZOLOFT [Suspect]
     Indication: DEPRESSION
     Dosage: UNK
     Route: 064
     Dates: start: 19991019
  2. ZOLOFT [Suspect]
     Indication: CRYING
     Dosage: 50 MG, UNK
     Route: 064
     Dates: start: 20030208
  3. ZOLOFT [Suspect]
     Indication: PREMENSTRUAL SYNDROME
     Dosage: 25 MG, UNK
     Route: 064
     Dates: start: 20030922
  4. ZOLOFT [Suspect]
     Dosage: 100MG DAILY
     Route: 064
     Dates: start: 20071016
  5. ZOLOFT [Suspect]
     Dosage: UNK
     Route: 064
     Dates: start: 20070121, end: 20070703
  6. SERTRALINE HCL [Suspect]
     Dosage: UNK
     Route: 064
     Dates: start: 20070121, end: 20070703
  7. PRENATAL VITAMINS [Concomitant]
     Dosage: UNK
     Route: 064
  8. IRON [Concomitant]
     Dosage: UNK
     Route: 064
  9. LOVENOX [Concomitant]
     Indication: ANTIPHOSPHOLIPID ANTIBODIES POSITIVE
     Dosage: 40 MG, 1X/DAY
     Route: 064
     Dates: start: 20070820
  10. ACETYLSALICYLIC ACID [Concomitant]
     Indication: ANTIPHOSPHOLIPID ANTIBODIES POSITIVE
     Dosage: UNK
     Route: 064
     Dates: start: 20070820
  11. TYLENOL [Concomitant]
     Indication: BACK PAIN
     Dosage: 2 TABS
     Route: 064
     Dates: start: 20070910
  12. METOPROLOL [Concomitant]
     Dosage: UNK
     Route: 064
  13. PERCOCET [Concomitant]
     Indication: PAIN
     Dosage: 5/325 MG, UNK 1 TO 2 TABS EVERY 4 HOURS
     Route: 064
     Dates: start: 20071206
  14. PERCOCET [Concomitant]
     Indication: PELVIC PAIN
  15. PERCOCET [Concomitant]
     Indication: PAIN IN EXTREMITY
  16. DARVOCET-N [Concomitant]
     Indication: PELVIC PAIN
     Dosage: UNK
     Route: 064
     Dates: start: 20071213
  17. HEPARIN [Concomitant]
     Indication: ANTIPHOSPHOLIPID ANTIBODIES POSITIVE
     Dosage: 10000 IU, 2X/DAY
     Route: 064
  18. TOPROL XL [Concomitant]
     Dosage: 25 MG, UNK
     Route: 064
  19. OXYCODONE/APAP [Concomitant]
     Dosage: UNK
     Route: 064
  20. CEPHALEXIN [Concomitant]
     Dosage: UNK
     Route: 064
  21. PROPOXYPHENE-N [Concomitant]
     Dosage: UNK
     Route: 064
  22. AVELOX [Concomitant]
     Dosage: UNK
     Route: 064
  23. CIPROFLOXACIN [Concomitant]
     Dosage: UNK
     Route: 064
  24. SULFASALAZINE [Concomitant]
     Dosage: UNK
     Route: 064
  25. METOCLOPRAMIDE [Concomitant]
     Dosage: UNK
     Route: 064
  26. PENTASA [Concomitant]
     Dosage: UNK
     Route: 064
  27. MERCAPTOPURINE [Concomitant]
     Dosage: UNK
     Route: 064
  28. ALPRAZOLAM [Concomitant]
     Dosage: UNK
     Route: 064
  29. ALLEGRA-D [Concomitant]
     Dosage: UNK
     Route: 064
  30. HYDRON CP [Concomitant]
     Dosage: UNK, LIQUID
     Route: 064
  31. OMNICEF [Concomitant]
     Dosage: UNK
     Route: 064
  32. AZITHROMYCIN [Concomitant]
     Dosage: UNK
     Route: 064
  33. PREDNISONE [Concomitant]
     Dosage: UNK
     Route: 064
  34. M-END SYRUP [Concomitant]
     Dosage: UNK
     Route: 064
  35. SULFAMETH/TRIMETHOPRIM [Concomitant]
     Dosage: UNK
     Route: 064
  36. PREVACID [Concomitant]
     Dosage: UNK
     Route: 064
  37. HYOSCYAMINE SULFATE [Concomitant]
     Dosage: UNK
     Route: 064
  38. RANITIDINE [Concomitant]
     Dosage: UNK
     Route: 064
  39. COLAZAL [Concomitant]
     Dosage: UNK
     Route: 064
  40. ENTOCORT EC [Concomitant]
     Dosage: UNK
     Route: 064
  41. CHLORDIAZEPOXIDE/CLIDINIUM [Concomitant]
     Dosage: UNK
     Route: 064
  42. DIPHENOXYLATE/ATROPINE [Concomitant]
     Dosage: UNK
     Route: 064
  43. ASTELIN READY [Concomitant]
     Dosage: UNK
     Route: 064
  44. DECONEX [Concomitant]
     Dosage: UNK
     Route: 064
  45. LEVAQUIN [Concomitant]
     Dosage: UNK
     Route: 064
  46. CLOMIPHENE [Concomitant]
     Dosage: UNK
     Route: 064
  47. AMOX/K CLAV [Concomitant]
     Dosage: UNK
     Route: 064
  48. TRIMETHOBENZ [Concomitant]
     Dosage: UNK
     Route: 064
  49. TRAMADOL [Concomitant]
     Dosage: UNK
     Route: 064
  50. METRONIDAZOLE [Concomitant]
     Dosage: UNK
     Route: 064
  51. HYDROXYZINE [Concomitant]
     Dosage: UNK
     Route: 064
  52. VERAPAMIL [Concomitant]
     Dosage: UNK
     Route: 064
  53. GYNAZOLE [Concomitant]
     Dosage: UNK, 1-2%
     Route: 064
  54. MACROBID [Concomitant]
     Dosage: UNK
     Route: 064
  55. ESTROSTEP FE [Concomitant]
     Dosage: UNK
     Route: 064
  56. ATUSS MS [Concomitant]
     Dosage: UNK
     Route: 064
  57. CLEOCIN [Concomitant]
     Dosage: UNK
     Route: 064
  58. CEFZIL [Concomitant]
     Dosage: UNK
     Route: 064
  59. NITROFURAN [Concomitant]
     Dosage: UNK
     Route: 064
  60. LEXAPRO [Concomitant]
     Dosage: UNK
     Route: 064
  61. PHENAZOPYRIDINE [Concomitant]
     Dosage: UNK
     Route: 064
  62. CYCLOBENZAPRINE [Concomitant]
     Dosage: UNK
     Route: 064
  63. AMOXICILLIN [Concomitant]
     Dosage: UNK
     Route: 064
  64. USEPT [Concomitant]
     Dosage: UNK
     Route: 064
  65. FLEXERIL [Concomitant]
     Dosage: UNK
     Route: 064
  66. CELEBREX [Concomitant]
     Dosage: UNK
     Route: 064
  67. QUIXIN [Concomitant]
     Dosage: UNK, 0.5%
     Route: 064
  68. FEXOFENADINE [Concomitant]
     Dosage: UNK
     Route: 064

REACTIONS (19)
  - Maternal exposure timing unspecified [Unknown]
  - Congenital ectopic bladder [Recovered/Resolved]
  - Atrial septal defect repair [Recovered/Resolved]
  - Ventricular septal defect repair [Recovered/Resolved]
  - Heart disease congenital [Recovered/Resolved]
  - Patent ductus arteriosus [Unknown]
  - Renal aplasia [Unknown]
  - Hydronephrosis [Unknown]
  - Exomphalos [Recovered/Resolved]
  - Genitalia external ambiguous [Unknown]
  - Anterior displaced anus [Unknown]
  - Congenital ureteric anomaly [Unknown]
  - Talipes [Unknown]
  - Cloacal exstrophy [Unknown]
  - Congenital genital malformation female [Unknown]
  - Hydrometra [Unknown]
  - Kidney malrotation [Unknown]
  - Congenital anomaly [Unknown]
  - Urinary tract infection [Unknown]
